FAERS Safety Report 5563290-8 (Version None)
Quarter: 2007Q4

REPORT INFORMATION
  Report Type: 
  Country: None (occurrence: None)
  Receive Date: 20071217
  Receipt Date: 20071204
  Transmission Date: 20080405
  Serious: Yes (Other)
  Sender: FDA-Public Use
  Company Number: FR-AMGEN-US162163

PATIENT
  Sex: Female

DRUGS (7)
  1. ENBREL [Suspect]
     Indication: RHEUMATOID ARTHRITIS
     Route: 058
     Dates: start: 20040701, end: 20041001
  2. OMEPRAZOLE [Concomitant]
     Dosage: UNKNOWN
     Route: 048
     Dates: start: 20010101
  3. METHOTREXATE [Concomitant]
     Dosage: UNKNOWN
     Route: 048
     Dates: start: 20000101, end: 20040701
  4. METHOTREXATE [Concomitant]
     Dosage: 15 MG WEEKLY
     Route: 048
     Dates: start: 20040701, end: 20041001
  5. METHOTREXATE [Concomitant]
     Dosage: 20 MG WEEKLY
     Route: 048
     Dates: start: 20041001
  6. CORTANCYL [Concomitant]
     Route: 048
  7. KETOPROFEN [Concomitant]
     Dosage: ON REQUEST
     Route: 065

REACTIONS (1)
  - LICHEN PLANUS [None]
